FAERS Safety Report 5803122-3 (Version None)
Quarter: 2008Q3

REPORT INFORMATION
  Report Type: 
  Country: None (occurrence: None)
  Receive Date: 20080708
  Receipt Date: 20080627
  Transmission Date: 20090109
  Serious: Yes (Hospitalization, Other)
  Sender: FDA-Public Use
  Company Number: US-MERCK-0803USA02312

PATIENT
  Age: 61 Year
  Sex: Female
  Weight: 58 kg

DRUGS (2)
  1. FOSAMAX [Suspect]
     Indication: OSTEOPOROSIS
     Route: 048
     Dates: start: 19980201, end: 20070301
  2. FOSAMAX [Suspect]
     Route: 048
     Dates: start: 20010101

REACTIONS (24)
  - ABDOMINAL DISCOMFORT [None]
  - AMNESIA [None]
  - ANXIETY [None]
  - ARTHROPATHY [None]
  - BRONCHITIS [None]
  - CHOLELITHIASIS [None]
  - DEPRESSION [None]
  - DIABETES MELLITUS [None]
  - DIARRHOEA [None]
  - DYSPEPSIA [None]
  - GASTROINTESTINAL DISORDER [None]
  - GASTROINTESTINAL MOTILITY DISORDER [None]
  - GINGIVITIS [None]
  - HIP FRACTURE [None]
  - INSOMNIA [None]
  - MUSCLE SPASMS [None]
  - NECK MASS [None]
  - ORAL TORUS [None]
  - OSTEONECROSIS [None]
  - PRODUCTIVE COUGH [None]
  - SINUSITIS [None]
  - SKIN LESION [None]
  - TREMOR [None]
  - URINARY INCONTINENCE [None]
